FAERS Safety Report 20109482 (Version 2)
Quarter: 2021Q4

REPORT INFORMATION
  Report Type: Report from Study
  Country: IT (occurrence: IT)
  Receive Date: 20211124
  Receipt Date: 20211203
  Transmission Date: 20220303
  Serious: Yes (Life-Threatening, Hospitalization)
  Sender: FDA-Public Use
  Company Number: IT-BRISTOL-MYERS SQUIBB COMPANY-BMS-2021-104581

PATIENT
  Age: 67 Year
  Sex: Male
  Weight: 76 kg

DRUGS (6)
  1. NIVOLUMAB [Suspect]
     Active Substance: NIVOLUMAB
     Indication: Squamous cell carcinoma of lung
     Dosage: 480 MILLIGRAM
     Route: 041
     Dates: start: 20210929, end: 20210929
  2. PULRODEMSTAT BESILATE [Suspect]
     Active Substance: PULRODEMSTAT BESILATE
     Indication: Squamous cell carcinoma of lung
     Dosage: 40 MILLIGRAM
     Route: 048
     Dates: start: 20210929, end: 20210929
  3. ATORVASTATIN [Concomitant]
     Active Substance: ATORVASTATIN
     Indication: Hypercholesterolaemia
     Dosage: 20 MILLIGRAM, QD
     Route: 048
  4. ASPIRIN [Concomitant]
     Active Substance: ASPIRIN
     Indication: Hypertension
     Dosage: 100 MILLIGRAM, QD
     Route: 048
  5. LANSOPRAZOLE [Concomitant]
     Active Substance: LANSOPRAZOLE
     Indication: Product used for unknown indication
     Dosage: 30 MILLIGRAM, QD
     Route: 048
  6. PARACODIN [DIHYDROCODEINE] [Concomitant]
     Indication: Prophylaxis

REACTIONS (1)
  - Alveolitis [Recovered/Resolved]

NARRATIVE: CASE EVENT DATE: 20211007
